FAERS Safety Report 6108118-2 (Version None)
Quarter: 2009Q1

REPORT INFORMATION
  Report Type: 
  Country: None (occurrence: None)
  Receive Date: 20090304
  Receipt Date: 20080415
  Transmission Date: 20090719
  Serious: Yes (Other)
  Sender: FDA-Public Use
  Company Number: US-000644

PATIENT
  Age: 81 Year
  Sex: Male

DRUGS (2)
  1. ISOVUE-300 [Suspect]
     Indication: ABDOMINAL PAIN
     Dosage: 100ML QD INTRAVENOUS
     Route: 042
     Dates: start: 20080415, end: 20080415
  2. ISOVUE-300 [Suspect]
     Indication: COMPUTERISED TOMOGRAM
     Dosage: 100ML QD INTRAVENOUS
     Route: 042
     Dates: start: 20080415, end: 20080415

REACTIONS (2)
  - CONVULSION [None]
  - HYPERSENSITIVITY [None]
